FAERS Safety Report 7469864-1 (Version None)
Quarter: 2011Q2

REPORT INFORMATION
  Report Type: 
  Country: None (occurrence: None)
  Receive Date: 20110510
  Receipt Date: 20101111
  Transmission Date: 20111010
  Serious: Yes (Other)
  Sender: FDA-Public Use
  Company Number: DE-ROCHE-736384

PATIENT
  Sex: Female
  Weight: 68 kg

DRUGS (3)
  1. URSO FALK [Concomitant]
     Indication: AUTOIMMUNE HEPATITIS
     Dates: start: 20040101
  2. CELLCEPT [Suspect]
     Indication: AUTOIMMUNE HEPATITIS
     Route: 048
     Dates: start: 20100901
  3. BUDESONIDE [Concomitant]
     Indication: AUTOIMMUNE HEPATITIS
     Dates: start: 20040101

REACTIONS (7)
  - ILL-DEFINED DISORDER [None]
  - DIARRHOEA [None]
  - CHILLS [None]
  - VOMITING [None]
  - NAUSEA [None]
  - PAIN [None]
  - PYREXIA [None]
